FAERS Safety Report 8987658 (Version 1)
Quarter: 2012Q4

REPORT INFORMATION
  Report Type: Report from Study
  Country: JP (occurrence: JP)
  Receive Date: 20121227
  Receipt Date: 20121227
  Transmission Date: 20130627
  Serious: Yes (Other)
  Sender: FDA-Public Use
  Company Number: JP-VERTEX PHARMACEUTICALS INC.-AE-2012-011814

PATIENT
  Age: 71 Year
  Sex: Female

DRUGS (15)
  1. VX-950 (TELAPREVIR) [Suspect]
     Indication: CHRONIC HEPATITIS C
     Dosage: 1500 mg, qd
     Route: 048
     Dates: start: 20120210, end: 20120504
  2. RIBAVIRIN [Suspect]
     Indication: CHRONIC HEPATITIS C
     Dosage: 400 mg, qd
     Route: 048
     Dates: start: 20120210, end: 20120629
  3. PEGINTRON                          /01543001/ [Suspect]
     Indication: CHRONIC HEPATITIS C
     Dosage: 1.5 ?g/kg, qw
     Route: 058
     Dates: start: 20120210, end: 20120302
  4. PEGINTRON                          /01543001/ [Suspect]
     Dosage: 1.5 ?g/kg, qw
     Route: 058
     Dates: start: 20120316, end: 20120316
  5. PEGINTRON                          /01543001/ [Suspect]
     Dosage: 1.1 ?g/kg, qw
     Route: 058
     Dates: start: 20120323, end: 20120330
  6. PEGINTRON                          /01543001/ [Suspect]
     Dosage: 1.1 ?g/kg, qw
     Route: 058
     Dates: start: 20120413, end: 20120427
  7. PEGINTRON                          /01543001/ [Suspect]
     Dosage: 80 ?g/body, qw
     Route: 058
     Dates: start: 20120511, end: 20120511
  8. PEGINTRON                          /01543001/ [Suspect]
     Dosage: 60 ?g/ body, qw
     Route: 058
     Dates: start: 20120518, end: 20120518
  9. PEGINTRON                          /01543001/ [Suspect]
     Dosage: 80 ?g/ body, qw
     Route: 058
     Dates: start: 20120601, end: 20120601
  10. PEGINTRON                          /01543001/ [Suspect]
     Dosage: 80 ?g/ body, qw
     Route: 058
     Dates: start: 20120615, end: 20120615
  11. PEGINTRON                          /01543001/ [Suspect]
     Dosage: 60 ?g, qw
     Route: 058
     Dates: start: 20120622, end: 20120622
  12. URSO                               /00465701/ [Concomitant]
     Dosage: 300 mg, qd
     Route: 048
  13. LIVACT                             /00847901/ [Concomitant]
     Dosage: 4.15 g, qd
     Route: 048
  14. GLAKAY [Concomitant]
     Dosage: 45 mg, qd
     Route: 048
  15. LENDORMIN BOEHRINGER [Concomitant]
     Dosage: 0.25 mg, qd
     Route: 048

REACTIONS (1)
  - Neutrophil count decreased [Recovered/Resolved]
